FAERS Safety Report 24870056 (Version 1)
Quarter: 2025Q1

REPORT INFORMATION
  Report Type: Spontaneous
  Country: US (occurrence: US)
  Receive Date: 20250121
  Receipt Date: 20250121
  Transmission Date: 20250409
  Serious: Yes (Hospitalization, Other)
  Sender: ELI LILLY AND COMPANY
  Company Number: US-ELI_LILLY_AND_COMPANY-US202501012245

PATIENT
  Age: 84 Year
  Sex: Male

DRUGS (3)
  1. CIALIS [Suspect]
     Active Substance: TADALAFIL
     Indication: Substance use
     Route: 065
     Dates: start: 1985
  2. CIALIS [Suspect]
     Active Substance: TADALAFIL
     Indication: Lower urinary tract symptoms
  3. CIALIS [Suspect]
     Active Substance: TADALAFIL
     Indication: Prostatomegaly

REACTIONS (7)
  - Prostate cancer [Unknown]
  - Hemianopia homonymous [Unknown]
  - Cerebrovascular accident [Unknown]
  - Off label use [Unknown]
  - Dehydration [Unknown]
  - Oligodipsia [Unknown]
  - Lower urinary tract symptoms [Unknown]

NARRATIVE: CASE EVENT DATE: 20050101
